FAERS Safety Report 5598535-1 (Version None)
Quarter: 2008Q1

REPORT INFORMATION
  Report Type: 
  Country: None (occurrence: None)
  Receive Date: 20080122
  Receipt Date: 20080114
  Transmission Date: 20080703
  Serious: Yes (Death, Other)
  Sender: FDA-Public Use
  Company Number: DE-ELI_LILLY_AND_COMPANY-DE200801002475

PATIENT
  Sex: Male

DRUGS (4)
  1. ALIMTA [Suspect]
     Indication: PLEURAL MESOTHELIOMA
     Dosage: 500 MG/M2, UNK
     Route: 042
     Dates: start: 20071219
  2. DEXAMETHASONE [Concomitant]
     Indication: PROPHYLAXIS
  3. FOLIC ACID [Concomitant]
     Indication: PROPHYLAXIS
  4. VITAMINS NOS [Concomitant]

REACTIONS (6)
  - FEBRILE NEUTROPENIA [None]
  - HAEMORRHAGE [None]
  - PANCYTOPENIA [None]
  - RASH [None]
  - RENAL FAILURE [None]
  - THROMBOCYTOPENIA [None]
